FAERS Safety Report 5170355-1 (Version None)
Quarter: 2006Q4

REPORT INFORMATION
  Report Type: 
  Country: None (occurrence: None)
  Receive Date: 20061204
  Receipt Date: 20061121
  Transmission Date: 20070319
  Serious: Yes (Death, Other)
  Sender: FDA-Public Use
  Company Number: 2006-03094

PATIENT
  Age: 48 Year
  Sex: Female
  Weight: 48 kg

DRUGS (4)
  1. VELCADE [Suspect]
     Indication: MULTIPLE MYELOMA
     Dosage: 2.00 MG, INTRAVENOUS
     Route: 042
     Dates: start: 20061013, end: 20061020
  2. DEXAMETHASONE [Concomitant]
  3. ONDANSETRON HCL [Concomitant]
  4. CLODRONATE DISODIUM (CLODRONATE DISODIUM) [Concomitant]

REACTIONS (3)
  - ALANINE AMINOTRANSFERASE INCREASED [None]
  - CEREBRAL HAEMORRHAGE [None]
  - RENAL IMPAIRMENT [None]
